FAERS Safety Report 12907341 (Version 1)
Quarter: 2016Q4

REPORT INFORMATION
  Report Type: Spontaneous
  Country: US (occurrence: US)
  Receive Date: 20161103
  Receipt Date: 20161103
  Transmission Date: 20170207
  Serious: No
  Sender: FDA-Public Use
  Company Number: US-LANTHEUS-LMI-2016-00612

PATIENT
  Sex: Male

DRUGS (1)
  1. XENON [Suspect]
     Active Substance: XENON\XENON XE-133
     Indication: VENTILATION/PERFUSION SCAN
     Dosage: UNK
     Route: 055
     Dates: start: 20160817

REACTIONS (2)
  - Throat irritation [Recovered/Resolved]
  - Nasal discomfort [Recovered/Resolved]

NARRATIVE: CASE EVENT DATE: 20160817
